FAERS Safety Report 4427856-0 (Version None)
Quarter: 2004Q3

REPORT INFORMATION
  Report Type: 
  Country: None (occurrence: None)
  Receive Date: 20040812
  Receipt Date: 20040805
  Transmission Date: 20050211
  Serious: Yes (Other)
  Sender: FDA-Public Use
  Company Number: 2004226942IN

PATIENT

DRUGS (1)
  1. AROMASIN [Suspect]

REACTIONS (1)
  - DIABETES MELLITUS [None]
